FAERS Safety Report 13163072 (Version 2)
Quarter: 2017Q1

REPORT INFORMATION
  Report Type: Spontaneous
  Country: US (occurrence: US)
  Receive Date: 20170130
  Receipt Date: 20170220
  Transmission Date: 20170428
  Serious: No
  Sender: FDA-Public Use
  Company Number: US-GLAXOSMITHKLINE-US2017011702

PATIENT
  Sex: Female
  Weight: 53.97 kg

DRUGS (1)
  1. BENLYSTA [Suspect]
     Active Substance: BELIMUMAB
     Indication: PRODUCT USED FOR UNKNOWN INDICATION
     Dosage: 545 MG IN 120 MG VIAL
     Route: 042
     Dates: start: 2016

REACTIONS (1)
  - Headache [Recovered/Resolved]
